FAERS Safety Report 11492231 (Version 1)
Quarter: 2015Q3

REPORT INFORMATION
  Report Type: Spontaneous
  Country: US (occurrence: None)
  Receive Date: 20150910
  Receipt Date: 20150910
  Transmission Date: 20151125
  Serious: No
  Sender: FDA-Public Use
  Company Number: None

PATIENT
  Age: 79 Year
  Sex: Female
  Weight: 92.99 kg

DRUGS (1)
  1. ATIVAN [Suspect]
     Active Substance: LORAZEPAM
     Indication: ANXIETY
     Dosage: 1/2 MG, 1 AT NIGHT

REACTIONS (2)
  - Activities of daily living impaired [None]
  - Condition aggravated [None]

NARRATIVE: CASE EVENT DATE: 2015
